FAERS Safety Report 21690675 (Version 2)
Quarter: 2022Q4

REPORT INFORMATION
  Report Type: Report from Study
  Country: US (occurrence: US)
  Receive Date: 20221206
  Receipt Date: 20221215
  Transmission Date: 20230113
  Serious: Yes (Hospitalization)
  Sender: FDA-Public Use
  Company Number: US-BRISTOL-MYERS SQUIBB COMPANY-2022-148115

PATIENT
  Age: 72 Year
  Sex: Male
  Weight: 72.8 kg

DRUGS (3)
  1. LENALIDOMIDE [Suspect]
     Active Substance: LENALIDOMIDE
     Indication: Mantle cell lymphoma
     Dosage: MOST RECENT STUDY VISIT PRIOR TO THIS EVENT WAS ON 08-NOV-2022
     Route: 048
     Dates: start: 20191113
  2. VENETOCLAX [Suspect]
     Active Substance: VENETOCLAX
     Indication: Mantle cell lymphoma
     Dosage: MOST RECENT STUDY VISIT PRIOR TO THIS EVENT WAS ON 24-MAR-2021
     Route: 048
     Dates: start: 20191119, end: 20210324
  3. RITUXIMAB [Suspect]
     Active Substance: RITUXIMAB
     Indication: Mantle cell lymphoma
     Dosage: MOST RECENT STUDY VISIT PRIOR TO THIS EVENT WAS ON 08-NOV-2022  800 MG 90 MIN
     Route: 042
     Dates: start: 20191119

REACTIONS (1)
  - COVID-19 [Recovered/Resolved]

NARRATIVE: CASE EVENT DATE: 20221129
